FAERS Safety Report 4884710-8 (Version None)
Quarter: 2006Q1

REPORT INFORMATION
  Report Type: 
  Country: None (occurrence: None)
  Receive Date: 20060117
  Receipt Date: 20051031
  Transmission Date: 20060701
  Serious: Yes (Hospitalization)
  Sender: FDA-Public Use
  Company Number: 2005169453

PATIENT
  Age: 66 Year
  Sex: Female
  Weight: 89.8122 kg

DRUGS (5)
  1. BEXTRA [Suspect]
     Indication: PAIN IN EXTREMITY
     Dosage: 20 MG (1 IN 1 D),
     Dates: start: 20040213, end: 20040221
  2. PREDNISONE [Suspect]
     Indication: PAIN IN EXTREMITY
     Dosage: TAPERING DOSE (20 MG), ORAL
     Route: 048
     Dates: start: 20040213
  3. SOLU-CORTEF [Suspect]
     Indication: ILL-DEFINED DISORDER
     Dosage: INTRAVENOUS
     Route: 042
     Dates: start: 20040226
  4. VICODIN [Concomitant]
  5. FOSAMAX [Concomitant]

REACTIONS (10)
  - ELECTROCARDIOGRAM ST-T SEGMENT ABNORMAL [None]
  - ERYTHEMA MULTIFORME [None]
  - HYPERGLYCAEMIA [None]
  - PHARYNGEAL OEDEMA [None]
  - RASH GENERALISED [None]
  - RASH MACULAR [None]
  - STEVENS-JOHNSON SYNDROME [None]
  - SWELLING FACE [None]
  - SWOLLEN TONGUE [None]
  - URTICARIA [None]
